FAERS Safety Report 5219342-5 (Version None)
Quarter: 2006Q4

REPORT INFORMATION
  Report Type: 
  Country: None (occurrence: None)
  Receive Date: 20061201
  Receipt Date: 20060728
  Transmission Date: 20070319
  Serious: No
  Sender: FDA-Public Use
  Company Number: 2006PV018410

PATIENT
  Age: 53 Year
  Sex: Female
  Weight: 107.0489 kg

DRUGS (5)
  1. BYETTA [Suspect]
     Indication: DIABETES MELLITUS NON-INSULIN-DEPENDENT
     Dosage: 10 MCG UNK SC ; 5 MG UNK SC
     Route: 058
     Dates: start: 20060601, end: 20060723
  2. BYETTA [Suspect]
     Indication: DIABETES MELLITUS NON-INSULIN-DEPENDENT
     Dosage: 10 MCG UNK SC ; 5 MG UNK SC
     Route: 058
     Dates: start: 20060724
  3. GLUCOPHAGE [Concomitant]
  4. LIPITOR [Concomitant]
  5. FLUOXETINE HCL [Concomitant]

REACTIONS (6)
  - BLOOD GLUCOSE ABNORMAL [None]
  - BLOOD GLUCOSE INCREASED [None]
  - DRUG EFFECT DECREASED [None]
  - INJECTION SITE RASH [None]
  - STRESS [None]
  - WEIGHT DECREASED [None]
